FAERS Safety Report 5174335-1 (Version None)
Quarter: 2006Q4

REPORT INFORMATION
  Report Type: 
  Country: None (occurrence: None)
  Receive Date: 20061214
  Receipt Date: 20060509
  Transmission Date: 20070319
  Serious: Yes (Hospitalization)
  Sender: FDA-Public Use
  Company Number: US-ELI_LILLY_AND_COMPANY-US200609001867

PATIENT
  Sex: Male
  Weight: 88.888 kg

DRUGS (2)
  1. PROZAC [Concomitant]
     Dates: start: 19990101
  2. ZYPREXA [Suspect]
     Route: 065

REACTIONS (7)
  - CARDIAC DISORDER [None]
  - DIABETES MELLITUS [None]
  - HYPERGLYCAEMIA [None]
  - HYPERPHAGIA [None]
  - HYPOGLYCAEMIA [None]
  - POLYDIPSIA [None]
  - POLYURIA [None]
